FAERS Safety Report 23171634 (Version 2)
Quarter: 2023Q4

REPORT INFORMATION
  Report Type: Spontaneous
  Country: US (occurrence: US)
  Receive Date: 20231110
  Receipt Date: 20231218
  Transmission Date: 20240110
  Serious: No
  Sender: FDA-Public Use
  Company Number: US-BAYER-2023A157102

PATIENT
  Age: 28 Year
  Sex: Male

DRUGS (1)
  1. JIVI [Suspect]
     Active Substance: DAMOCTOCOG ALFA PEGOL
     Dosage: 5000 IU, PRN, (+/- 10%) 2 TIMES A WEEK AS

REACTIONS (2)
  - Wrong technique in product usage process [None]
  - Extra dose administered [None]

NARRATIVE: CASE EVENT DATE: 20231010
